FAERS Safety Report 8932570 (Version 1)
Quarter: 2012Q4

REPORT INFORMATION
  Report Type: Spontaneous
  Country: NL (occurrence: None)
  Receive Date: 20121119
  Receipt Date: 20121119
  Transmission Date: 20130627
  Serious: Yes (Hospitalization)
  Sender: FDA-Public Use
  Company Number: NL-1195147

PATIENT
  Age: 72 Year
  Sex: Female
  Weight: 100 kg

DRUGS (14)
  1. TOBRADEX [Suspect]
     Indication: INFLAMMATION
     Dosage: (1 Gtt TID)
     Route: 047
     Dates: start: 20120906, end: 20120912
  2. MESTINON [Concomitant]
  3. HYDROCHLOORTHIAZIDE [Concomitant]
  4. CAPTOPRIL [Concomitant]
  5. METFORMINE [Concomitant]
  6. OMEPRAZOL [Concomitant]
  7. VIDISIC CARBOGEL [Concomitant]
  8. NOVORAPID [Concomitant]
  9. DICLOFENACNATRIUM ALPHARMA [Concomitant]
  10. CALCIUM [Concomitant]
  11. ALENDRON [Concomitant]
  12. ALTI-AZATHIOPRINE [Concomitant]
  13. PREDNISOLON [Concomitant]
  14. TOLBUTAMIDE [Concomitant]

REACTIONS (1)
  - Myasthenia gravis [None]
